FAERS Safety Report 8880028 (Version 1)
Quarter: 2012Q4

REPORT INFORMATION
  Report Type: Report from Study
  Country: DE (occurrence: DE)
  Receive Date: 20121031
  Receipt Date: 20121031
  Transmission Date: 20130627
  Serious: Yes (Hospitalization)
  Sender: FDA-Public Use
  Company Number: DE-ROCHE-1151079

PATIENT
  Sex: Male
  Weight: 77 kg

DRUGS (6)
  1. TRASTUZUMAB [Suspect]
     Indication: GASTRIC CANCER
     Route: 042
  2. 5-FU [Suspect]
     Indication: GASTRIC CANCER
     Route: 042
  3. OXALIPLATIN [Suspect]
     Indication: GASTRIC CANCER
     Route: 042
  4. FOLINIC ACID [Suspect]
     Indication: GASTRIC CANCER
     Route: 042
  5. DOCETAXEL [Suspect]
     Indication: GASTRIC CANCER
     Route: 042
  6. METOPROLOL [Concomitant]
     Indication: HYPERTENSION
     Route: 048

REACTIONS (3)
  - General physical health deterioration [Unknown]
  - Skin toxicity [Unknown]
  - Neutropenia [Unknown]
